FAERS Safety Report 24396230 (Version 3)
Quarter: 2025Q1

REPORT INFORMATION
  Report Type: Spontaneous
  Country: US (occurrence: US)
  Receive Date: 20241004
  Receipt Date: 20250115
  Transmission Date: 20250409
  Serious: Yes (Death, Other)
  Sender: SANOFI AVENTIS
  Company Number: US-SANOFI-02246482

PATIENT
  Age: 45 Year
  Sex: Male

DRUGS (5)
  1. LANTUS [Suspect]
     Active Substance: INSULIN GLARGINE
     Indication: Diabetes mellitus
     Dosage: 30 U, BID
     Route: 058
     Dates: start: 2009
  2. LANTUS [Suspect]
     Active Substance: INSULIN GLARGINE
     Dosage: 30U, BID
     Route: 058
     Dates: start: 2018, end: 20240906
  3. ATORVASTATIN CALCIUM [Concomitant]
     Active Substance: ATORVASTATIN CALCIUM
     Dosage: 1 DF, QD
     Route: 048
     Dates: start: 202406
  4. NIFEDIPINE [Concomitant]
     Active Substance: NIFEDIPINE
     Dosage: 1 DF, QD
     Route: 048
     Dates: start: 202406, end: 20240906
  5. LOSARTAN [Concomitant]
     Active Substance: LOSARTAN
     Dosage: 1 DF, QD
     Route: 048
     Dates: start: 202406, end: 20240906

REACTIONS (24)
  - Coma [Fatal]
  - Arteriosclerosis [Fatal]
  - Blood glucose abnormal [Fatal]
  - Haematemesis [Unknown]
  - Syncope [Unknown]
  - Nausea [Unknown]
  - Weight decreased [Unknown]
  - Pain [Unknown]
  - Tremor [Unknown]
  - Dysarthria [Unknown]
  - Respiratory tract infection [Unknown]
  - Blood potassium decreased [Unknown]
  - Dizziness [Unknown]
  - Chills [Unknown]
  - Respiratory tract congestion [Unknown]
  - Rash erythematous [Unknown]
  - Illness [Unknown]
  - Underweight [Unknown]
  - Asthenia [Unknown]
  - Hyperhidrosis [Unknown]
  - Cough [Unknown]
  - Vision blurred [Unknown]
  - Blood glucose decreased [Unknown]
  - Inappropriate schedule of product administration [Unknown]

NARRATIVE: CASE EVENT DATE: 20240906
